FAERS Safety Report 9155607 (Version 3)
Quarter: 2014Q2

REPORT INFORMATION
  Report Type: Spontaneous
  Country: FR (occurrence: FR)
  Receive Date: 20130311
  Receipt Date: 20140407
  Transmission Date: 20141212
  Serious: Yes (Hospitalization)
  Sender: FDA-Public Use
  Company Number: FR-GLAXOSMITHKLINE-B0872973A

PATIENT
  Age: 91 Year
  Sex: Female

DRUGS (4)
  1. ARIXTRA [Suspect]
     Indication: ATRIAL FIBRILLATION
     Dosage: 2.5MG PER DAY
     Route: 058
     Dates: start: 201301, end: 20130202
  2. PARIET [Concomitant]
     Route: 065
  3. UVEDOSE [Concomitant]
     Route: 065
  4. FORLAX [Concomitant]
     Route: 065

REACTIONS (3)
  - Subcutaneous haematoma [Recovered/Resolved with Sequelae]
  - Skin necrosis [Recovering/Resolving]
  - Off label use [Unknown]
